FAERS Safety Report 4825642-0 (Version None)
Quarter: 2005Q4

REPORT INFORMATION
  Report Type: 
  Country: None (occurrence: None)
  Receive Date: 20051109
  Receipt Date: 20051031
  Transmission Date: 20060501
  Serious: Yes (Other)
  Sender: FDA-Public Use
  Company Number: 2005-11-0027

PATIENT
  Age: 55 Year
  Sex: Female

DRUGS (1)
  1. CLARITIN [Suspect]
     Indication: URTICARIA
     Dosage: 10 MG ORAL
     Route: 048
     Dates: start: 20051028, end: 20051030

REACTIONS (2)
  - LOSS OF CONSCIOUSNESS [None]
  - RASH [None]
